FAERS Safety Report 6758377-8 (Version None)
Quarter: 2010Q2

REPORT INFORMATION
  Report Type: 
  Country: None (occurrence: None)
  Receive Date: 20100607
  Receipt Date: 20100524
  Transmission Date: 20101027
  Serious: No
  Sender: FDA-Public Use
  Company Number: US-B.I. PHARMACEUTICALS,INC./RIDGEFIELD-2010-BP-05949BP

PATIENT
  Sex: Female

DRUGS (4)
  1. ZANTAC 75 [Suspect]
     Indication: HYPERSENSITIVITY
     Dosage: 150 MG
     Route: 048
     Dates: start: 20100501
  2. ZANTAC 75 [Suspect]
     Indication: DYSPEPSIA
  3. ZANTAC 150 [Suspect]
     Indication: HYPERSENSITIVITY
     Dosage: 150 MG
     Route: 048
     Dates: start: 20100501
  4. ZANTAC 150 [Suspect]
     Indication: DYSPEPSIA

REACTIONS (3)
  - ABDOMINAL DISTENSION [None]
  - DRUG INEFFECTIVE [None]
  - DYSPEPSIA [None]
